FAERS Safety Report 9865406 (Version 1)
Quarter: 2014Q1

REPORT INFORMATION
  Report Type: Spontaneous
  Country: US (occurrence: US)
  Receive Date: 20140203
  Receipt Date: 20140203
  Transmission Date: 20141002
  Serious: No
  Sender: FDA-Public Use
  Company Number: US-ALLERGAN-1307571US

PATIENT
  Age: 73 Year
  Sex: Female

DRUGS (3)
  1. RESTASIS [Suspect]
     Indication: DRY EYE
     Dosage: 2 GTT, BID
     Route: 047
     Dates: start: 201305
  2. RESTASIS [Suspect]
  3. MURO 128                           /00075401/ [Concomitant]
     Indication: DRY EYE
     Dosage: 2 GTT, QHS
     Route: 047
     Dates: start: 2011

REACTIONS (2)
  - Dry mouth [Not Recovered/Not Resolved]
  - Superficial injury of eye [Unknown]
